FAERS Safety Report 4503259-5 (Version None)
Quarter: 2004Q4

REPORT INFORMATION
  Report Type: 
  Country: None (occurrence: None)
  Receive Date: 20041117
  Receipt Date: 20041108
  Transmission Date: 20050328
  Serious: Yes (Death, Other)
  Sender: FDA-Public Use
  Company Number: US-MERCK-0411USA01417

PATIENT
  Age: 50 Year
  Sex: Male

DRUGS (1)
  1. INVANZ [Suspect]
     Indication: DIABETIC FOOT INFECTION
     Route: 042
     Dates: start: 20030201

REACTIONS (6)
  - CONVULSION [None]
  - CREATININE RENAL CLEARANCE DECREASED [None]
  - DEATH [None]
  - FOOT AMPUTATION [None]
  - HYPERKALAEMIA [None]
  - HYPOCALCAEMIA [None]
